FAERS Safety Report 12363861 (Version 1)
Quarter: 2016Q2

REPORT INFORMATION
  Report Type: Spontaneous
  Country: US (occurrence: US)
  Receive Date: 20160512
  Receipt Date: 20160512
  Transmission Date: 20160815
  Serious: No
  Sender: FDA-Public Use
  Company Number: US-UCBSA-2015023688

PATIENT
  Age: 49 Year
  Sex: Female
  Weight: 79 kg

DRUGS (1)
  1. CIMZIA [Suspect]
     Active Substance: CERTOLIZUMAB PEGOL
     Indication: CROHN^S DISEASE
     Dosage: 400 MG, EV 4 WEEKS
     Dates: start: 20150714, end: 20150714

REACTIONS (7)
  - Eye pain [Not Recovered/Not Resolved]
  - Nervousness [Not Recovered/Not Resolved]
  - Dizziness [Not Recovered/Not Resolved]
  - Disorientation [Recovered/Resolved]
  - Headache [Not Recovered/Not Resolved]
  - Confusional state [Not Recovered/Not Resolved]
  - Myalgia [Not Recovered/Not Resolved]

NARRATIVE: CASE EVENT DATE: 201507
